FAERS Safety Report 5654118-6 (Version None)
Quarter: 2008Q1

REPORT INFORMATION
  Report Type: 
  Country: None (occurrence: None)
  Receive Date: 20080306
  Receipt Date: 20080225
  Transmission Date: 20080703
  Serious: Yes (Other)
  Sender: FDA-Public Use
  Company Number: US-PFIZER INC-2008018467

PATIENT
  Sex: Male
  Weight: 73.5 kg

DRUGS (11)
  1. NEURONTIN [Suspect]
     Indication: PAIN
     Dosage: DAILY DOSE:9000MG
  2. CHANTIX [Suspect]
     Indication: SMOKING CESSATION THERAPY
  3. TRUVADA [Concomitant]
  4. FUZEON [Concomitant]
  5. SITAGLIPTIN [Concomitant]
  6. METFORMIN HCL [Concomitant]
  7. ALL OTHER THERAPEUTIC PRODUCTS [Concomitant]
  8. CYMBALTA [Concomitant]
  9. TOPAMAX [Concomitant]
  10. ORAMORPH SR [Concomitant]
  11. DRUG, UNSPECIFIED [Concomitant]

REACTIONS (1)
  - DISSOCIATIVE FUGUE [None]
